FAERS Safety Report 6637299-7 (Version None)
Quarter: 2010Q1

REPORT INFORMATION
  Report Type: 
  Country: None (occurrence: None)
  Receive Date: 20100316
  Receipt Date: 20100219
  Transmission Date: 20100710
  Serious: Yes (Other)
  Sender: FDA-Public Use
  Company Number: US-ABBOTT-10P-163-0627677-00

PATIENT
  Sex: Female
  Weight: 67.192 kg

DRUGS (15)
  1. TRILIPIX [Suspect]
     Indication: HYPERTRIGLYCERIDAEMIA
     Dates: end: 20091110
  2. STATIN [Concomitant]
     Indication: DRUG USE FOR UNKNOWN INDICATION
  3. SYNTHROID [Concomitant]
     Indication: HYPOTHYROIDISM
  4. PREVACID [Concomitant]
     Indication: DRUG USE FOR UNKNOWN INDICATION
  5. NOVALOG PUMP [Concomitant]
     Indication: DIABETES MELLITUS
  6. LOTREL [Concomitant]
     Indication: HYPERTENSION
  7. TRENTAL [Concomitant]
     Indication: PERIPHERAL VASCULAR DISORDER
  8. ZOLOFT [Concomitant]
     Indication: DEPRESSION
  9. FERROUS SULFATE TAB [Concomitant]
     Indication: ANAEMIA
  10. ISOSORBIDE [Concomitant]
     Indication: CORONARY ARTERY DISEASE
  11. SODIUM BICARBONATE [Concomitant]
     Indication: RENAL DISORDER
  12. AVAPRO [Concomitant]
     Indication: HYPERTENSION
  13. FUROSEMIDE [Concomitant]
     Indication: OEDEMA
  14. METOPROLOL TARTRATE [Concomitant]
     Indication: HYPERTENSION
  15. VITAMIN D [Concomitant]
     Indication: DRUG USE FOR UNKNOWN INDICATION

REACTIONS (1)
  - RHABDOMYOLYSIS [None]
